FAERS Safety Report 9694216 (Version 2)
Quarter: 2013Q4

REPORT INFORMATION
  Report Type: Spontaneous
  Country: US (occurrence: US)
  Receive Date: 20131118
  Receipt Date: 20131226
  Transmission Date: 20140711
  Serious: Yes (Other)
  Sender: FDA-Public Use
  Company Number: US-B.I. PHARMACEUTICALS,INC./RIDGEFIELD-2013-BI-37203BP

PATIENT
  Sex: Female
  Weight: 94 kg

DRUGS (9)
  1. SPIRIVA [Suspect]
     Indication: CHRONIC OBSTRUCTIVE PULMONARY DISEASE
     Dosage: 18 MCG
     Route: 055
     Dates: start: 2005
  2. SPIRIVA [Suspect]
     Dosage: 18 MCG
     Route: 055
     Dates: start: 20101210
  3. ADVAIR [Concomitant]
     Indication: CHRONIC OBSTRUCTIVE PULMONARY DISEASE
     Dosage: 2 PUF
     Route: 055
     Dates: start: 2005
  4. BYSTOLIC [Concomitant]
     Indication: CARDIAC DISORDER
     Dosage: 10 MG
     Route: 048
  5. LOFIBRA [Concomitant]
     Indication: BLOOD TRIGLYCERIDES INCREASED
     Dosage: 145 MG
     Route: 048
     Dates: start: 201305
  6. RAMIPRIL [Concomitant]
     Indication: HYPERTENSION
     Dosage: 5 MG
     Route: 048
     Dates: start: 2010
  7. SINGULAIR [Concomitant]
     Indication: CHRONIC OBSTRUCTIVE PULMONARY DISEASE
     Dosage: 10 MG
     Route: 048
     Dates: start: 2005
  8. ATORVASTATIN [Concomitant]
     Indication: BLOOD CHOLESTEROL INCREASED
     Dosage: 40 MG
     Route: 048
     Dates: start: 201305
  9. CDP/AMITRIP [Concomitant]
     Indication: ANXIETY
     Dosage: (TABLET) STRENGTH: 5-12.5 MG; DAILY DOSE: 5-12.5 MG
     Route: 048
     Dates: start: 1993

REACTIONS (1)
  - Macular degeneration [Not Recovered/Not Resolved]
